FAERS Safety Report 25745545 (Version 1)
Quarter: 2025Q3

REPORT INFORMATION
  Report Type: Spontaneous
  Country: US (occurrence: US)
  Receive Date: 20250901
  Receipt Date: 20250901
  Transmission Date: 20251021
  Serious: No
  Sender: GLAXOSMITHKLINE
  Company Number: US-GSK-US2025AMR101486

PATIENT
  Sex: Female

DRUGS (4)
  1. BENLYSTA [Suspect]
     Active Substance: BELIMUMAB
     Indication: Systemic lupus erythematosus
     Dosage: 580 MG, Q2W FOR 3 DOSES
  2. BENLYSTA [Suspect]
     Active Substance: BELIMUMAB
     Dosage: 580 MG, Q4W
     Dates: end: 202507
  3. PREDNISONE [Concomitant]
     Active Substance: PREDNISONE
     Indication: Product used for unknown indication
  4. HYDROXYCHLOROQUINE [Concomitant]
     Active Substance: HYDROXYCHLOROQUINE
     Indication: Product used for unknown indication

REACTIONS (5)
  - Vertigo [Unknown]
  - Dizziness [Unknown]
  - Balance disorder [Unknown]
  - Headache [Unknown]
  - Cerebral disorder [Unknown]
